FAERS Safety Report 4491418-X (Version None)
Quarter: 2004Q4

REPORT INFORMATION
  Report Type: 
  Country: None (occurrence: None)
  Receive Date: 20041101
  Receipt Date: 20041101
  Transmission Date: 20050328
  Serious: Yes (Hospitalization)
  Sender: FDA-Public Use
  Company Number: None

PATIENT
  Sex: Female
  Weight: 86 kg

DRUGS (1)
  1. NITROFURANTION [Suspect]
     Dosage: 100 MG BID ORAL
     Route: 048

REACTIONS (3)
  - NAUSEA [None]
  - PANCREATITIS [None]
  - VOMITING [None]
